FAERS Safety Report 9394241 (Version 6)
Quarter: 2013Q3

REPORT INFORMATION
  Report Type: Report from Study
  Country: JP (occurrence: JP)
  Receive Date: 20130711
  Receipt Date: 20130819
  Transmission Date: 20140515
  Serious: Yes (Hospitalization)
  Sender: FDA-Public Use
  Company Number: JP-PFIZER INC-2013201557

PATIENT
  Age: 71 Year
  Sex: Male

DRUGS (25)
  1. CISPLATIN [Suspect]
     Indication: GASTROOESOPHAGEAL CANCER
     Dosage: 45.6 MG/BODY
     Dates: start: 20130523, end: 20130613
  2. IRINOTECAN HYDROCHLORIDE [Suspect]
     Indication: GASTROOESOPHAGEAL CANCER
     Dosage: 92.7 MG/BODY
     Dates: start: 20130523, end: 20130613
  3. IPILIMUMAB [Suspect]
     Indication: GASTROOESOPHAGEAL CANCER
     Dosage: 10 MG/KG, UNK
     Route: 042
     Dates: start: 20130402, end: 20130423
  4. METHYLPREDNISOLONE SODIUM SUCCINATE [Concomitant]
     Dosage: 60 MG+ 60 MG
     Dates: end: 20130515
  5. LANSOPRAZOLE [Concomitant]
     Dosage: UNK
     Dates: start: 20121024
  6. AMLODIPINE BESILATE [Concomitant]
     Dosage: UNK
     Dates: start: 20121112
  7. LOXOPROFEN SODIUM [Concomitant]
     Dosage: UNK
     Dates: start: 20121126
  8. HEPARINOID [Concomitant]
     Dosage: UNK
     Dates: start: 20121218
  9. SPIRONOLACTONE [Concomitant]
     Dosage: UNK
     Dates: start: 20130423
  10. HYDROXYZINE PAMOATE [Concomitant]
     Dosage: 25 MG, UNK
     Dates: start: 20130513
  11. INTRALIPOS [Concomitant]
     Dosage: UNK
     Dates: start: 20130513
  12. FULCALIQ [Concomitant]
     Dosage: UNK
     Dates: start: 20130514
  13. MAGNESIUM OXIDE [Concomitant]
     Dosage: UNK
     Dates: start: 20121113
  14. GLUCOSE [Concomitant]
  15. ELEMENMIC [Concomitant]
  16. PREDNISOLONE [Concomitant]
     Dosage: 30 MG, 1X/DAY
     Dates: start: 20130515, end: 20130614
  17. ACETAMINOPHEN [Concomitant]
  18. SULBACTAM SODIUM [Concomitant]
  19. CEFTAZIDIME [Concomitant]
  20. CIPROFLOXACIN [Concomitant]
     Dosage: UNK
  21. AMLODIPINE BESILATE/LISINOPRIL [Concomitant]
     Dosage: UNK
     Dates: start: 20121112
  22. DIPHENHYDRAMINE [Concomitant]
     Dosage: UNK
     Dates: start: 20130423
  23. FEXOFENADINE HYDROCHLORIDE [Concomitant]
     Dosage: UNK
     Dates: start: 20130423
  24. FUROSEMIDE [Concomitant]
     Dosage: UNK
     Dates: start: 20130423
  25. BROTIZOLAM [Concomitant]
     Dosage: UNK
     Dates: start: 20130517

REACTIONS (4)
  - Decreased appetite [Recovered/Resolved]
  - Fatigue [Recovered/Resolved]
  - Pyrexia [Not Recovered/Not Resolved]
  - Peripheral sensory neuropathy [Recovered/Resolved]
